FAERS Safety Report 8283754-6 (Version None)
Quarter: 2012Q2

REPORT INFORMATION
  Report Type: 
  Country: None (occurrence: None)
  Receive Date: 20120413
  Receipt Date: 20110303
  Transmission Date: 20120825
  Serious: No
  Sender: FDA-Public Use
  Company Number: US-ASTRAZENECA-2011SE11859

PATIENT
  Age: 63 Year
  Sex: Female
  Weight: 61.2 kg

DRUGS (5)
  1. NATURAL HORMONES [Concomitant]
  2. NEXIUM [Suspect]
     Indication: GASTROOESOPHAGEAL REFLUX DISEASE
     Route: 048
     Dates: start: 20110226
  3. LORAZEPAM [Concomitant]
     Indication: SLEEP DISORDER
  4. PRILOSEC OTC [Suspect]
     Route: 048
  5. PREVACID [Suspect]

REACTIONS (2)
  - FLUSHING [None]
  - INSOMNIA [None]
